FAERS Safety Report 8505727-8 (Version None)
Quarter: 2012Q3

REPORT INFORMATION
  Report Type: 
  Country: None (occurrence: None)
  Receive Date: 20120712
  Receipt Date: 20120702
  Transmission Date: 20120928
  Serious: Yes (Hospitalization)
  Sender: FDA-Public Use
  Company Number: JP-BAYER-200913689BYL

PATIENT
  Age: 68 Year
  Sex: Male
  Weight: 75.9 kg

DRUGS (18)
  1. LASIX [Concomitant]
     Dosage: 80 MG (DAILY DOSE), , ORAL
     Route: 048
     Dates: start: 20090803
  2. HERBAL PREPARATION [Concomitant]
     Dosage: 3 DF (DAILY DOSE), , ORAL
     Route: 048
     Dates: start: 20090803
  3. UREPEARL [Concomitant]
     Route: 061
     Dates: start: 20090813
  4. NEXAVAR [Suspect]
     Dosage: 400 MG DAILY
     Dates: start: 20100805
  5. NEXAVAR [Suspect]
     Dosage: 400 MG (DAILY DOSE), , ORAL
     Route: 048
     Dates: start: 20090914, end: 20091223
  6. DEPAS [Concomitant]
     Dosage: 1 MG (DAILY DOSE), , ORAL
     Route: 048
     Dates: start: 20090808
  7. CATLEP [Concomitant]
     Dosage: 1 DF (DAILY DOSE), , TRANSDERMAL
     Route: 062
     Dates: start: 20090808
  8. NEXAVAR [Suspect]
     Indication: HEPATIC NEOPLASM MALIGNANT
     Route: 048
     Dates: start: 20090810, end: 20090819
  9. DAIKENTYUTO [Concomitant]
     Dosage: 3 DF (DAILY DOSE), , ORAL
     Route: 048
     Dates: start: 20090803
  10. MUCOSTA [Concomitant]
     Dosage: 3 DF (DAILY DOSE), , ORAL
     Route: 048
     Dates: start: 20090803
  11. AMINOLEBAN EN [Concomitant]
     Dosage: 1 DF (DAILY DOSE), , ORAL
     Route: 048
     Dates: start: 20090803
  12. ALDACTONE [Concomitant]
     Dosage: 50 MG (DAILY DOSE), , ORAL
     Route: 048
     Dates: start: 20090803
  13. RABEPRAZOLE SODIUM [Concomitant]
     Dosage: 20 MG (DAILY DOSE), , ORAL
     Route: 048
     Dates: start: 20090803
  14. URSO 250 [Concomitant]
     Dosage: 600 MG (DAILY DOSE), , ORAL
     Route: 048
     Dates: start: 20090803
  15. SUCRALFATE [Concomitant]
     Dosage: 3 DF (DAILY DOSE), , ORAL
     Route: 048
     Dates: start: 20090803
  16. LACTULOSE [Concomitant]
     Dosage: 60 ML (DAILY DOSE), , ORAL
     Route: 048
     Dates: start: 20090803
  17. LIVACT [Concomitant]
     Dosage: 3 DF (DAILY DOSE), , ORAL
     Route: 048
     Dates: start: 20090803
  18. NABOAL [Concomitant]
     Route: 062
     Dates: start: 20090803

REACTIONS (1)
  - HEPATIC ENCEPHALOPATHY [None]
